FAERS Safety Report 4629367-6 (Version None)
Quarter: 2005Q2

REPORT INFORMATION
  Report Type: 
  Country: None (occurrence: None)
  Receive Date: 20050405
  Receipt Date: 20050324
  Transmission Date: 20051028
  Serious: Yes (Death)
  Sender: FDA-Public Use
  Company Number: 430006M05DEU

PATIENT
  Age: 45 Year
  Sex: Female

DRUGS (1)
  1. RALENOVA (MITOXANTRONE HYDROCHLORIDE) [Suspect]
     Indication: MULTIPLE SCLEROSIS
     Dosage: INTRAVENOUS (NOT OTHERWISE SPECIFIED)
     Route: 042

REACTIONS (1)
  - ACUTE PROMYELOCYTIC LEUKAEMIA [None]
